FAERS Safety Report 9460744 (Version 1)
Quarter: 2013Q3

REPORT INFORMATION
  Report Type: Spontaneous
  Country: US (occurrence: US)
  Receive Date: 20130815
  Receipt Date: 20130815
  Transmission Date: 20140515
  Serious: Yes (Other)
  Sender: FDA-Public Use
  Company Number: US-GLAXOSMITHKLINE-A1037183A

PATIENT
  Sex: Female

DRUGS (1)
  1. ADVAIR [Suspect]
     Indication: ASTHMA
     Dates: start: 2003

REACTIONS (4)
  - Pulmonary mycosis [Unknown]
  - Respiratory moniliasis [Unknown]
  - Eosinophil count increased [Unknown]
  - Throat irritation [Unknown]
